FAERS Safety Report 6283436-6 (Version None)
Quarter: 2009Q4

REPORT INFORMATION
  Report Type: 
  Country: None (occurrence: None)
  Receive Date: 20090721
  Receipt Date: 20090721
  Transmission Date: 20100525
  Serious: Yes (Other)
  Sender: FDA-Public Use
  Company Number: None

PATIENT
  Age: 51 Year
  Sex: Female

DRUGS (2)
  1. NITROFURANTOIN [Suspect]
     Dosage: 100MG PO BID
     Dates: start: 20070621, end: 20070625
  2. NITROFURANTOIN [Suspect]
     Dosage: 100MG PO BID
     Dates: start: 20070630, end: 20070707

REACTIONS (5)
  - BLOOD URINE PRESENT [None]
  - HEPATITIS ACUTE [None]
  - HEPATOTOXICITY [None]
  - LIVER INJURY [None]
  - URINARY TRACT INFECTION [None]
